FAERS Safety Report 20565852 (Version 3)
Quarter: 2022Q3

REPORT INFORMATION
  Report Type: Spontaneous
  Country: US (occurrence: None)
  Receive Date: 20220308
  Receipt Date: 20220826
  Transmission Date: 20221027
  Serious: Yes (Death, Other)
  Sender: FDA-Public Use
  Company Number: 2022A099938

PATIENT
  Age: 20889 Day
  Sex: Female
  Weight: 98.4 kg

DRUGS (37)
  1. NEXIUM [Suspect]
     Active Substance: ESOMEPRAZOLE MAGNESIUM
     Indication: Gastrooesophageal reflux disease
     Route: 048
     Dates: start: 2012, end: 2017
  2. NEXIUM [Suspect]
     Active Substance: ESOMEPRAZOLE MAGNESIUM
     Indication: Gastrooesophageal reflux disease
     Route: 048
     Dates: start: 2007, end: 2017
  3. NEXIUM [Suspect]
     Active Substance: ESOMEPRAZOLE MAGNESIUM
     Indication: Gastrooesophageal reflux disease
     Dosage: GENERIC.
     Route: 065
     Dates: start: 2015, end: 2017
  4. NEXIUM 24HR [Suspect]
     Active Substance: ESOMEPRAZOLE MAGNESIUM
     Indication: Gastrooesophageal reflux disease
     Dosage: DOSE AS RECOMMENDED.
     Route: 048
     Dates: start: 2014, end: 2017
  5. PRILOSEC [Suspect]
     Active Substance: OMEPRAZOLE MAGNESIUM
     Indication: Gastrooesophageal reflux disease
     Route: 048
     Dates: start: 2014, end: 2017
  6. PRILOSEC OTC [Suspect]
     Active Substance: OMEPRAZOLE MAGNESIUM
     Indication: Gastrooesophageal reflux disease
     Dosage: RECOMMENDED AS NEEDED.
     Route: 048
     Dates: start: 2014, end: 2017
  7. PANTOPRAZOLE [Suspect]
     Active Substance: PANTOPRAZOLE
     Indication: Gastrooesophageal reflux disease
     Dosage: GENERIC
     Route: 065
     Dates: start: 2016
  8. FLUPENTIXOL/NORTRIPTYLINE [Concomitant]
  9. GABAPENTIN [Concomitant]
     Active Substance: GABAPENTIN
  10. FERROUS BISGLYCINATE/FOLINIC ACID/PYRIDOXAL PHOSPHATE/MECOBALAMIN/(6S) [Concomitant]
  11. ROPINRROLE [Concomitant]
  12. CARVEDILOL [Concomitant]
     Active Substance: CARVEDILOL
  13. LANTUS [Concomitant]
     Active Substance: INSULIN GLARGINE
  14. NOVOLOG [Concomitant]
     Active Substance: INSULIN ASPART
  15. BENZONATATE [Concomitant]
     Active Substance: BENZONATATE
  16. AZITHROMYCIN [Concomitant]
     Active Substance: AZITHROMYCIN
  17. LISINOPRIL [Concomitant]
     Active Substance: LISINOPRIL
     Indication: Blood pressure measurement
     Dates: end: 2017
  18. NITROGLYCERIN [Concomitant]
     Active Substance: NITROGLYCERIN
  19. PLAVIX [Concomitant]
     Active Substance: CLOPIDOGREL BISULFATE
  20. DETROL LA [Concomitant]
     Active Substance: TOLTERODINE TARTRATE
  21. ATROVASTATIJN [Concomitant]
     Indication: Blood cholesterol
     Dates: end: 2017
  22. FUROSEMIDE [Concomitant]
     Active Substance: FUROSEMIDE
     Indication: Fluid retention
     Dates: end: 2017
  23. CLOPIDOGREL [Concomitant]
     Active Substance: CLOPIDOGREL BISULFATE
     Indication: Pain
     Dates: end: 2017
  24. ALBUTEROL [Concomitant]
     Active Substance: ALBUTEROL
  25. LASIX [Concomitant]
     Active Substance: FUROSEMIDE
  26. IBUPROFEN [Concomitant]
     Active Substance: IBUPROFEN
     Indication: Pain
     Dosage: AS NEEDED
  27. DOXYCYCLINE [Concomitant]
     Active Substance: DOXYCYCLINE
  28. FLEXERIL [Concomitant]
     Active Substance: CYCLOBENZAPRINE HYDROCHLORIDE
  29. TEMAZEPAM [Concomitant]
     Active Substance: TEMAZEPAM
  30. CALCIUM CARBONATE [Concomitant]
     Active Substance: CALCIUM CARBONATE
  31. SPIRONOLACTONE [Concomitant]
     Active Substance: SPIRONOLACTONE
  32. TAURINE/AMINOCAPROIC ACID/SULFAMETHOXAZOLE SODIUM/DIPOTASSIUM GLYCYRRH [Concomitant]
  33. TYLENOL [Concomitant]
     Active Substance: ACETAMINOPHEN
  34. SERTRALINE [Concomitant]
     Active Substance: SERTRALINE HYDROCHLORIDE
  35. RESTORIL [Concomitant]
     Active Substance: TEMAZEPAM
  36. ENTRESTO [Concomitant]
     Active Substance: SACUBITRIL\VALSARTAN
  37. ASPIRIN [Concomitant]
     Active Substance: ASPIRIN
     Indication: Pain
     Dosage: AS NEEDED

REACTIONS (4)
  - Acute myocardial infarction [Fatal]
  - Acute kidney injury [Unknown]
  - Chronic kidney disease [Unknown]
  - Renal failure [Unknown]

NARRATIVE: CASE EVENT DATE: 20170312
